FAERS Safety Report 10310317 (Version 2)
Quarter: 2014Q3

REPORT INFORMATION
  Report Type: Spontaneous
  Country: US (occurrence: US)
  Receive Date: 20140717
  Receipt Date: 20140722
  Transmission Date: 20150326
  Serious: No
  Sender: FDA-Public Use
  Company Number: US-PFIZER INC-2014199498

PATIENT
  Age: 41 Year
  Sex: Female
  Weight: 63.49 kg

DRUGS (3)
  1. ADVIL [Concomitant]
     Active Substance: IBUPROFEN
     Dosage: AS NEEDED
     Dates: end: 201407
  2. ADVIL [Concomitant]
     Active Substance: IBUPROFEN
     Indication: PAIN
     Dosage: SIX TO NINE IN A DAY (EXPLAINED AS NOT MORE THAN FOUR IN A DAY)
     Dates: end: 201407
  3. CELEBREX [Suspect]
     Active Substance: CELECOXIB
     Indication: PAIN
     Dosage: 200 MG, 2X/DAY
     Dates: start: 20140703, end: 201407

REACTIONS (8)
  - Drug ineffective [Recovered/Resolved]
  - Back pain [Recovered/Resolved]
  - Intentional product misuse [Unknown]
  - Confusional state [Recovered/Resolved]
  - Pain [Recovered/Resolved]
  - Pain in extremity [Recovered/Resolved]
  - Insomnia [Recovered/Resolved]
  - Middle insomnia [Recovered/Resolved]

NARRATIVE: CASE EVENT DATE: 201407
